FAERS Safety Report 23531185 (Version 1)
Quarter: 2024Q1

REPORT INFORMATION
  Report Type: Spontaneous
  Country: US (occurrence: US)
  Receive Date: 20240216
  Receipt Date: 20240216
  Transmission Date: 20240409
  Serious: No
  Sender: FDA-Public Use
  Company Number: US-DRL-USA-LIT/USA/24/0002391

PATIENT
  Age: 31 Year
  Sex: Female

DRUGS (16)
  1. METOPROLOL [Suspect]
     Active Substance: METOPROLOL
     Indication: Product used for unknown indication
  2. MORPHINE [Suspect]
     Active Substance: MORPHINE
     Indication: Product used for unknown indication
     Dosage: 150 G
  3. LIDOCAINE [Suspect]
     Active Substance: LIDOCAINE
     Indication: Product used for unknown indication
     Dosage: 3 ML OF 1.5%
  4. FENTANYL [Suspect]
     Active Substance: FENTANYL\FENTANYL CITRATE
     Indication: Product used for unknown indication
     Dosage: 15 G
     Route: 037
  5. DIGOXIN [Suspect]
     Active Substance: DIGOXIN
     Indication: Product used for unknown indication
  6. TORSEMIDE [Suspect]
     Active Substance: TORSEMIDE
  7. BETAMETHASONE [Suspect]
     Active Substance: BETAMETHASONE\BETAMETHASONE DIPROPIONATE
     Indication: Maternal therapy to enhance foetal lung maturity
  8. BUMETANIDE [Suspect]
     Active Substance: BUMETANIDE
     Indication: Polyuria
     Dosage: 0.25 MG/HOUR
  9. MILRINONE [Suspect]
     Active Substance: MILRINONE
     Indication: Product used for unknown indication
     Dosage: 0.3 G/KG/MIN
  10. BUPIVACAINE [Suspect]
     Active Substance: BUPIVACAINE
     Dosage: 0.5 ML OF 0.75%
  11. EPINEPHRINE [Suspect]
     Active Substance: EPINEPHRINE
     Indication: Product used for unknown indication
     Dosage: 15 G
  12. EPINEPHRINE [Suspect]
     Active Substance: EPINEPHRINE
     Dosage: 1 MCG/MIN
  13. MAGNESIUM [Suspect]
     Active Substance: MAGNESIUM
     Indication: Product used for unknown indication
     Dosage: 1 G/HOUR
  14. POTASSIUM [Suspect]
     Active Substance: POTASSIUM
     Indication: Product used for unknown indication
  15. NOREPINEPHRINE [Suspect]
     Active Substance: NOREPINEPHRINE
  16. METOLAZONE [Suspect]
     Active Substance: METOLAZONE
     Indication: Polyuria

REACTIONS (2)
  - Normal newborn [Recovered/Resolved]
  - Exposure during pregnancy [Recovered/Resolved]
